FAERS Safety Report 8285718-5 (Version None)
Quarter: 2012Q2

REPORT INFORMATION
  Report Type: 
  Country: None (occurrence: None)
  Receive Date: 20120413
  Receipt Date: 20120330
  Transmission Date: 20120825
  Serious: Yes (Death, Hospitalization, Other)
  Sender: FDA-Public Use
  Company Number: JP-AMGEN-JPNSP2012016138

PATIENT
  Age: 47 Year
  Sex: Female

DRUGS (6)
  1. ENBREL [Suspect]
     Indication: ARTHRITIS INFECTIVE
     Dosage: 50 MG, UNK
     Route: 058
     Dates: start: 20101001, end: 20111101
  2. ENBREL [Suspect]
     Dosage: 50 MG, FREQUENCY UNKNOWN
     Route: 058
     Dates: start: 20101001, end: 20111101
  3. ENBREL [Suspect]
     Dosage: 50 MG, FREQUENCY UNKNOWN
     Route: 058
     Dates: start: 20120102
  4. METHOTREXATE [Concomitant]
     Indication: ARTHRITIS INFECTIVE
     Dosage: UNK
  5. PREDNISOLONE [Concomitant]
     Indication: ARTHRITIS INFECTIVE
     Dosage: UNK
  6. ENBREL [Suspect]
     Dosage: 50 MG, FREQUENCY UNKNOWN
     Route: 058
     Dates: start: 20120102

REACTIONS (2)
  - RHABDOMYOLYSIS [None]
  - CARDIAC DISORDER [None]
